FAERS Safety Report 25603208 (Version 3)
Quarter: 2025Q3

REPORT INFORMATION
  Report Type: Spontaneous
  Country: CA (occurrence: CA)
  Receive Date: 20250724
  Receipt Date: 20250924
  Transmission Date: 20251021
  Serious: Yes (Other)
  Sender: PFIZER
  Company Number: CA-PFIZER INC-202500147926

PATIENT
  Age: 57 Year
  Sex: Female
  Weight: 73 kg

DRUGS (7)
  1. IXIFI [Suspect]
     Active Substance: INFLIXIMAB-QBTX
     Indication: Crohn^s disease
     Route: 042
     Dates: start: 20250529
  2. IXIFI [Suspect]
     Active Substance: INFLIXIMAB-QBTX
     Route: 042
     Dates: start: 20250627
  3. IXIFI [Suspect]
     Active Substance: INFLIXIMAB-QBTX
     Route: 042
     Dates: start: 20250814
  4. METHADONE [Concomitant]
     Active Substance: METHADONE HYDROCHLORIDE
  5. SYNTHROID [Concomitant]
     Active Substance: LEVOTHYROXINE SODIUM
  6. SENOKOT [Concomitant]
     Active Substance: SENNOSIDES
  7. TRAZODONE [Concomitant]
     Active Substance: TRAZODONE HYDROCHLORIDE

REACTIONS (2)
  - Breast cancer female [Unknown]
  - Condition aggravated [Unknown]

NARRATIVE: CASE EVENT DATE: 20250101
